FAERS Safety Report 8537523-X (Version None)
Quarter: 2012Q3

REPORT INFORMATION
  Report Type: 
  Country: None (occurrence: None)
  Receive Date: 20120725
  Receipt Date: 20120717
  Transmission Date: 20120928
  Serious: Yes (Hospitalization)
  Sender: FDA-Public Use
  Company Number: US-ASTRAZENECA-2012SE18826

PATIENT
  Age: 57 Year
  Sex: Male

DRUGS (8)
  1. LAMICTAL [Concomitant]
  2. TRAZODONE HYDROCHLORIDE [Concomitant]
  3. NEXIUM [Suspect]
     Route: 048
  4. METOPROLOL TARTRATE [Concomitant]
     Route: 048
  5. LIPITOR [Concomitant]
  6. WELLBUTRIN [Concomitant]
  7. LITHIUM CARBONATE [Concomitant]
  8. TAMSULOSIN HCL [Concomitant]

REACTIONS (5)
  - MALAISE [None]
  - DRUG DOSE OMISSION [None]
  - BIPOLAR DISORDER [None]
  - DYSPEPSIA [None]
  - MENTAL DISORDER [None]
